FAERS Safety Report 14061543 (Version 1)
Quarter: 2017Q4

REPORT INFORMATION
  Report Type: Spontaneous
  Country: FR (occurrence: FR)
  Receive Date: 20171009
  Receipt Date: 20171009
  Transmission Date: 20180321
  Serious: Yes (Death)
  Sender: FDA-Public Use
  Company Number: FR-ACCORD-059723

PATIENT
  Age: 73 Year
  Sex: Male

DRUGS (8)
  1. OXALIPLATIN ACCORD [Suspect]
     Active Substance: OXALIPLATIN
     Indication: OESOPHAGEAL CARCINOMA
     Dosage: CYCLE 1 OF CHEMOTHERAPY (C1) WITH FOLFOX WAS PERFORMED; STRENGTH - 5 MG/ ML
     Route: 042
     Dates: start: 20170719
  2. CORDARONE [Concomitant]
     Active Substance: AMIODARONE HYDROCHLORIDE
     Indication: MYOCARDIAL ISCHAEMIA
     Route: 048
  3. SCOPODERM [Concomitant]
     Active Substance: SCOPOLAMINE
     Dosage: TTS 1 MG / 72 HOURS; DEVICE TRANSDERMAL
     Route: 003
     Dates: start: 20170609
  4. INNOHEP [Concomitant]
     Active Substance: TINZAPARIN SODIUM
     Indication: HEART VALVE OPERATION
     Dosage: 14000 U.I. ANTI XA/0.7 ML
     Route: 058
     Dates: start: 20170611
  5. PARACETAMOL [Concomitant]
     Active Substance: ACETAMINOPHEN
  6. SPASFON [Concomitant]
     Active Substance: PHLOROGLUCINOL\1,3,5-TRIMETHOXYBENZENE
  7. DICYNONE [Concomitant]
     Active Substance: ETHAMSYLATE
     Dosage: STRENGTH - 250 MG/2 ML
     Route: 042
     Dates: start: 20170712
  8. LANSOPRAZOLE. [Concomitant]
     Active Substance: LANSOPRAZOLE
     Route: 048

REACTIONS (3)
  - Off label use [Unknown]
  - Circulatory collapse [Fatal]
  - Cardio-respiratory arrest [Fatal]

NARRATIVE: CASE EVENT DATE: 20170719
